FAERS Safety Report 4425856-8 (Version None)
Quarter: 2004Q3

REPORT INFORMATION
  Report Type: 
  Country: None (occurrence: None)
  Receive Date: 20040810
  Receipt Date: 20040729
  Transmission Date: 20050211
  Serious: Yes (Other)
  Sender: FDA-Public Use
  Company Number: 2004226115FR

PATIENT
  Age: 18 Year
  Sex: Male

DRUGS (1)
  1. GENOTROPIN [Suspect]
     Indication: PRADER-WILLI SYNDROME
     Dosage: SUBCUTANEOUS
     Route: 058
     Dates: start: 20030201, end: 20040701

REACTIONS (2)
  - CONDITION AGGRAVATED [None]
  - PULMONARY HYPERTENSION [None]
